FAERS Safety Report 6284889-X (Version None)
Quarter: 2009Q3

REPORT INFORMATION
  Report Type: 
  Country: None (occurrence: None)
  Receive Date: 20090727
  Receipt Date: 20090716
  Transmission Date: 20100115
  Serious: Yes (Hospitalization)
  Sender: FDA-Public Use
  Company Number: B0585664A

PATIENT
  Age: 57 Year
  Sex: Male

DRUGS (3)
  1. PAROXETINE HCL [Suspect]
     Indication: ANXIETY
     Dosage: 30MG IN THE MORNING
  2. CLOZARIL [Suspect]
     Indication: SCHIZOPHRENIA
     Route: 048
     Dates: start: 19900905, end: 20070316
  3. CLOZARIL [Suspect]
     Dosage: 600MG PER DAY
     Route: 048

REACTIONS (5)
  - DIZZINESS [None]
  - GANGRENE [None]
  - HAEMORRHOID INFECTION [None]
  - HYPOTENSION [None]
  - PLATELET COUNT INCREASED [None]
